FAERS Safety Report 10602959 (Version 1)
Quarter: 2014Q4

REPORT INFORMATION
  Report Type: Spontaneous
  Country: US (occurrence: US)
  Receive Date: 20141124
  Receipt Date: 20141124
  Transmission Date: 20150529
  Serious: No
  Sender: FDA-Public Use
  Company Number: US-NOVEN-14US010499

PATIENT
  Age: 66 Year
  Sex: Female

DRUGS (3)
  1. MINIVELLE [Suspect]
     Active Substance: ESTRADIOL
     Indication: HYSTERECTOMY
     Dosage: 0.0375 MG
     Route: 062
     Dates: start: 201406
  2. MINIVELLE [Suspect]
     Active Substance: ESTRADIOL
     Indication: STRESS
  3. SYNTHROID [Concomitant]
     Active Substance: LEVOTHYROXINE SODIUM
     Indication: HYPOTHYROIDISM
     Dosage: UNK
     Route: 048
     Dates: start: 2004

REACTIONS (6)
  - Off label use [Not Recovered/Not Resolved]
  - Feeling abnormal [Unknown]
  - Product quality issue [Unknown]
  - Feeling hot [Not Recovered/Not Resolved]
  - Drug prescribing error [Not Recovered/Not Resolved]
  - Fatigue [Unknown]

NARRATIVE: CASE EVENT DATE: 201406
